FAERS Safety Report 14347267 (Version 1)
Quarter: 2018Q1

REPORT INFORMATION
  Report Type: Spontaneous
  Country: US (occurrence: US)
  Receive Date: 20180103
  Receipt Date: 20180103
  Transmission Date: 20180509
  Serious: No
  Sender: FDA-Public Use
  Company Number: US-BAYER-2017-241892

PATIENT
  Age: 25 Year
  Sex: Male

DRUGS (1)
  1. ALEVE [Suspect]
     Active Substance: NAPROXEN SODIUM
     Indication: PAIN
     Dosage: 4 DF, QD
     Route: 048
     Dates: start: 20171213

REACTIONS (7)
  - Dizziness [Not Recovered/Not Resolved]
  - Rash [Recovered/Resolved]
  - Hypersensitivity [Unknown]
  - Throat irritation [Recovered/Resolved]
  - Incorrect dosage administered [Unknown]
  - Dyspnoea [Recovered/Resolved]
  - Pharyngeal oedema [None]

NARRATIVE: CASE EVENT DATE: 20171213
